FAERS Safety Report 16747587 (Version 3)
Quarter: 2022Q3

REPORT INFORMATION
  Report Type: Report from Study
  Country: BR (occurrence: BR)
  Receive Date: 20190827
  Receipt Date: 20220915
  Transmission Date: 20221026
  Serious: Yes (Other)
  Sender: FDA-Public Use
  Company Number: BR-TEVA-2019-BR-1098556

PATIENT

DRUGS (4)
  1. BLEOMYCIN [Suspect]
     Active Substance: BLEOMYCIN SULFATE
     Indication: Hodgkin^s disease
     Route: 065
  2. DOXORUBICIN [Suspect]
     Active Substance: DOXORUBICIN
     Indication: Hodgkin^s disease
     Route: 065
  3. VINBLASTINE [Suspect]
     Active Substance: VINBLASTINE
     Indication: Hodgkin^s disease
     Route: 065
  4. DACARBAZINE [Suspect]
     Active Substance: DACARBAZINE
     Indication: Hodgkin^s disease
     Route: 065

REACTIONS (1)
  - Febrile neutropenia [Unknown]
